FAERS Safety Report 17469878 (Version 2)
Quarter: 2020Q1

REPORT INFORMATION
  Report Type: Report from Study
  Country: US (occurrence: US)
  Receive Date: 20200227
  Receipt Date: 20200313
  Transmission Date: 20200409
  Serious: Yes (Other)
  Sender: FDA-Public Use
  Company Number: US-JNJFOC-20200208375

PATIENT
  Age: 59 Year
  Sex: Female
  Weight: 69.46 kg

DRUGS (7)
  1. SPRAVATO [Suspect]
     Active Substance: ESKETAMINE
     Indication: DEPRESSION
     Dates: start: 20190606
  2. VENLAFAXINE [Concomitant]
     Active Substance: VENLAFAXINE HYDROCHLORIDE
     Indication: DEPRESSION
     Dosage: TOOK FOR MANY YEARS
     Dates: end: 201911
  3. NALTREXONE [Concomitant]
     Active Substance: NALTREXONE
     Dates: start: 20190218, end: 20190611
  4. SAPHRIS [Concomitant]
     Active Substance: ASENAPINE MALEATE
     Indication: DRUG THERAPY
     Dosage: TOOK FOR SEVERAL YEARS
  5. WELLBUTRIN [Concomitant]
     Active Substance: BUPROPION HYDROCHLORIDE
     Indication: DEPRESSION
     Dates: start: 2018, end: 202001
  6. SPRAVATO [Suspect]
     Active Substance: ESKETAMINE
  7. MIRTAZAPINE. [Concomitant]
     Active Substance: MIRTAZAPINE
     Indication: DEPRESSION
     Dosage: SEVERAL YEARS

REACTIONS (2)
  - Hallucination [Unknown]
  - Sedation [Recovered/Resolved]

NARRATIVE: CASE EVENT DATE: 20191015
